FAERS Safety Report 4550280-7 (Version None)
Quarter: 2004Q4

REPORT INFORMATION
  Report Type: 
  Country: None (occurrence: None)
  Receive Date: 20041227
  Receipt Date: 20041112
  Transmission Date: 20050328
  Serious: No
  Sender: FDA-Public Use
  Company Number: 04P-163-0280359-00

PATIENT
  Age: 38 Year
  Sex: Female
  Weight: 81.6475 kg

DRUGS (7)
  1. HUMIRA [Suspect]
     Indication: RHEUMATOID ARTHRITIS
     Dosage: 40 MG, 1 IN 2 WK, SUBCUTANEOUS
     Route: 058
     Dates: start: 20041029
  2. LEFLUNOMIDE [Concomitant]
  3. PANTOPRAZOLE [Concomitant]
  4. MINOCYCLINE HCL [Concomitant]
  5. FERROUS SULFATE TAB [Concomitant]
  6. LEVOTHYROXINE SODIUM [Concomitant]
  7. PARACETMOL [Concomitant]

REACTIONS (1)
  - NASOPHARYNGITIS [None]
